FAERS Safety Report 5315650-8 (Version None)
Quarter: 2007Q2

REPORT INFORMATION
  Report Type: 
  Country: None (occurrence: None)
  Receive Date: 20070503
  Receipt Date: 20070502
  Transmission Date: 20071010
  Serious: Yes (Hospitalization, Other)
  Sender: FDA-Public Use
  Company Number: US-BRISTOL-MYERS SQUIBB COMPANY-13767520

PATIENT

DRUGS (1)
  1. AVAPRO [Suspect]

REACTIONS (1)
  - RENAL FAILURE [None]
